FAERS Safety Report 16064424 (Version 1)
Quarter: 2019Q1

REPORT INFORMATION
  Report Type: Report from Study
  Country: DE (occurrence: DE)
  Receive Date: 20190312
  Receipt Date: 20190312
  Transmission Date: 20190418
  Serious: Yes (Life-Threatening, Hospitalization, Disabling)
  Sender: FDA-Public Use
  Company Number: DE-MYLANLABS-2019M1022498

PATIENT
  Age: 68 Year
  Sex: Female

DRUGS (3)
  1. METHOTREXATE. [Suspect]
     Active Substance: METHOTREXATE
     Indication: RHEUMATOID ARTHRITIS
     Dosage: 10 MILLIGRAM
     Route: 065
     Dates: start: 2012
  2. TOCILIZUMAB. [Suspect]
     Active Substance: TOCILIZUMAB
     Dosage: 162 MILLIGRAM
     Route: 065
     Dates: start: 201412, end: 201709
  3. TOCILIZUMAB. [Suspect]
     Active Substance: TOCILIZUMAB
     Indication: RHEUMATOID ARTHRITIS
     Dosage: 560 MILLIGRAM
     Route: 065
     Dates: start: 201202, end: 201209

REACTIONS (4)
  - Polyneuropathy [Unknown]
  - Sepsis [Unknown]
  - Accidental overdose [Unknown]
  - Cerebral infarction [Unknown]

NARRATIVE: CASE EVENT DATE: 20171115
